FAERS Safety Report 7576202-2 (Version None)
Quarter: 2011Q2

REPORT INFORMATION
  Report Type: 
  Country: None (occurrence: None)
  Receive Date: 20110628
  Receipt Date: 20110203
  Transmission Date: 20111010
  Serious: Yes (Other)
  Sender: FDA-Public Use
  Company Number: US-BAYER-201033955NA

PATIENT
  Age: 19 Year
  Sex: Female
  Weight: 68.027 kg

DRUGS (1)
  1. YASMIN [Suspect]
     Indication: CONTRACEPTION
     Dosage: UNK UNK, UNK
     Route: 048
     Dates: start: 20050101, end: 20070101

REACTIONS (5)
  - EMOTIONAL DISTRESS [None]
  - GASTROINTESTINAL PAIN [None]
  - CHOLECYSTITIS CHRONIC [None]
  - MENTAL DISORDER [None]
  - GALLBLADDER INJURY [None]
